FAERS Safety Report 6547347-0 (Version None)
Quarter: 2010Q1

REPORT INFORMATION
  Report Type: 
  Country: None (occurrence: None)
  Receive Date: 20100122
  Receipt Date: 20100111
  Transmission Date: 20100710
  Serious: No
  Sender: FDA-Public Use
  Company Number: US-JNJFOC-20080604429

PATIENT
  Sex: Female
  Weight: 52.16 kg

DRUGS (5)
  1. DURAGESIC-100 [Suspect]
     Indication: PAIN
     Route: 062
  2. ACCUPRIL [Concomitant]
     Indication: HYPERTENSION
     Route: 048
  3. DIURETIC [Concomitant]
     Indication: DRUG USE FOR UNKNOWN INDICATION
     Route: 048
  4. WELLBUTIN [Concomitant]
     Indication: DRUG USE FOR UNKNOWN INDICATION
     Route: 048
  5. ROXICODONE [Concomitant]
     Indication: PAIN
     Dosage: 15 MG TABLET AS NEEDED
     Route: 048

REACTIONS (4)
  - CHILLS [None]
  - DRUG INEFFECTIVE [None]
  - HYPERHIDROSIS [None]
  - WRONG TECHNIQUE IN DRUG USAGE PROCESS [None]
